FAERS Safety Report 7391067-X (Version None)
Quarter: 2011Q1

REPORT INFORMATION
  Report Type: 
  Country: None (occurrence: None)
  Receive Date: 20110324
  Receipt Date: 20110316
  Transmission Date: 20110831
  Serious: Yes (Death)
  Sender: FDA-Public Use
  Company Number: 1000019288

PATIENT
  Sex: Male

DRUGS (2)
  1. LEXAPRO [Suspect]
  2. PSYCH MEDICATIONS (NOS) (PSYCH MEDICATIONS (NOS)) (PSYCH MEDICATIONS ( [Concomitant]

REACTIONS (3)
  - ANTIDEPRESSANT DRUG LEVEL INCREASED [None]
  - BRONCHOSPASM [None]
  - ASTHMA [None]
